FAERS Safety Report 9695604 (Version 2)
Quarter: 2013Q4

REPORT INFORMATION
  Report Type: Spontaneous
  Country: US (occurrence: US)
  Receive Date: 20131119
  Receipt Date: 20131204
  Transmission Date: 20140711
  Serious: No
  Sender: FDA-Public Use
  Company Number: US-PFIZER INC-2013328762

PATIENT
  Sex: Male

DRUGS (3)
  1. LYRICA [Suspect]
     Dosage: UNK
  2. PRISTIQ [Suspect]
     Dosage: UNK
  3. PROTONIX [Suspect]
     Dosage: UNK

REACTIONS (2)
  - Diarrhoea [Unknown]
  - Pain [Unknown]
